FAERS Safety Report 6774974-8 (Version None)
Quarter: 2010Q2

REPORT INFORMATION
  Report Type: 
  Country: None (occurrence: None)
  Receive Date: 20100617
  Receipt Date: 20100607
  Transmission Date: 20101027
  Serious: No
  Sender: FDA-Public Use
  Company Number: DE-ELI_LILLY_AND_COMPANY-DE201005003592

PATIENT
  Sex: Female
  Weight: 68 kg

DRUGS (2)
  1. ZYPREXA [Suspect]
     Indication: SCHIZOPHRENIA
     Dosage: 5 MG, DAILY (1/D)
     Route: 048
     Dates: start: 20021015, end: 20100509
  2. PANTOZOL [Concomitant]
     Dosage: UNK, AS NEEDED

REACTIONS (5)
  - CONCUSSION [None]
  - HEADACHE [None]
  - ILLUSION [None]
  - INJURY [None]
  - MEMORY IMPAIRMENT [None]
